FAERS Safety Report 24612881 (Version 1)
Quarter: 2024Q4

REPORT INFORMATION
  Report Type: Spontaneous
  Country: US (occurrence: None)
  Receive Date: 20241112
  Receipt Date: 20241112
  Transmission Date: 20250115
  Serious: Yes (Death)
  Sender: Public
  Company Number: None

PATIENT
  Age: 87 Year
  Sex: Female

DRUGS (11)
  1. PROLIA [Suspect]
     Active Substance: DENOSUMAB
     Indication: Senile osteoporosis
     Dosage: OTHER FREQUENCY : EVERY6MONTHS;?
     Route: 058
     Dates: start: 20230419, end: 20241108
  2. ACETAMINOPHEN S00MG CAPLETS [Concomitant]
  3. BACITRACIN/POLYMYX OPHTHOINT 3.SGM [Concomitant]
  4. DAILY-VITE TABLETS [Concomitant]
  5. DICLOFENAC 1 % GEL 1 00GM [Concomitant]
  6. FLUTICASONE 50MCG NASAL SP (120) RX [Concomitant]
  7. HYDROCHLOROTHIAZIDE 12.SMG CAPSULES [Concomitant]
  8. LEVOTHYROXINE 0.05MG (S0MCG) CAPS [Concomitant]
  9. LOSARTAN POTASSIUM [Concomitant]
     Active Substance: LOSARTAN POTASSIUM
  10. POTASSIUM CHLORIDE [Concomitant]
     Active Substance: POTASSIUM CHLORIDE
  11. SERTRALINE HYDROCHLORIDE [Concomitant]
     Active Substance: SERTRALINE HYDROCHLORIDE

REACTIONS (1)
  - Organ failure [None]

NARRATIVE: CASE EVENT DATE: 20241108
